FAERS Safety Report 18407731 (Version 3)
Quarter: 2021Q4

REPORT INFORMATION
  Report Type: Spontaneous
  Country: GB (occurrence: GB)
  Receive Date: 20201020
  Receipt Date: 20211123
  Transmission Date: 20220304
  Serious: Yes (Life-Threatening, Hospitalization, Other)
  Sender: FDA-Public Use
  Company Number: GB-KRKA-GB2020K15435LIT

PATIENT
  Age: 84 Year
  Sex: Female

DRUGS (18)
  1. ACETAMINOPHEN [Suspect]
     Active Substance: ACETAMINOPHEN
     Indication: Analgesic therapy
     Dosage: 4 GRAM, QD (1 G, 4X PER DAY)
  2. ACETAMINOPHEN [Suspect]
     Active Substance: ACETAMINOPHEN
     Dosage: 1 GRAM, Q6H
  3. OMEPRAZOLE [Concomitant]
     Active Substance: OMEPRAZOLE
     Indication: Product used for unknown indication
     Dosage: 20 MG, PER DAY, EVERY MORNING
  4. OMEPRAZOLE [Concomitant]
     Active Substance: OMEPRAZOLE
     Dosage: 20 MILLIGRAM, QD, (EVERY MORNING (OM) )
  5. FUROSEMIDE [Concomitant]
     Active Substance: FUROSEMIDE
     Indication: Product used for unknown indication
     Dosage: 40 MILLIGRAM, QD
  6. FUROSEMIDE [Concomitant]
     Active Substance: FUROSEMIDE
     Dosage: 40 MILLIGRAM, QD, EVERY MORNING (OM)
  7. QUETIAPINE [Concomitant]
     Active Substance: QUETIAPINE
     Indication: Product used for unknown indication
     Dosage: 50 MILLIGRAM, QD (25 MG, 2X PER DAY)
  8. QUETIAPINE [Concomitant]
     Active Substance: QUETIAPINE
     Dosage: 50 MILLIGRAM, BID
  9. MIRTAZAPINE [Concomitant]
     Active Substance: MIRTAZAPINE
     Indication: Product used for unknown indication
     Dosage: 45 MG, PER DAY, AT NIGHT
  10. MIRTAZAPINE [Concomitant]
     Active Substance: MIRTAZAPINE
     Dosage: 45 MILLIGRAM, QD, AT NIGHT
  11. BISOPROLOL [Concomitant]
     Active Substance: BISOPROLOL
     Indication: Product used for unknown indication
     Dosage: 2.5 MG
  12. BISOPROLOL [Concomitant]
     Active Substance: BISOPROLOL
     Dosage: 2.5 MILLIGRAM, QD, EVERY MORNING (OM)
  13. DIGOXIN [Concomitant]
     Active Substance: DIGOXIN
     Indication: Product used for unknown indication
     Dosage: 62.5 UG
  14. DIGOXIN [Concomitant]
     Active Substance: DIGOXIN
     Dosage: 62.5 MICROGRAM, QD, EVERY MORNING (OM)
  15. APIXABAN [Concomitant]
     Active Substance: APIXABAN
     Indication: Product used for unknown indication
     Dosage: 5 MILLIGRAM, QD (2.5 MG, 2X PER DAY)
  16. APIXABAN [Concomitant]
     Active Substance: APIXABAN
     Dosage: 2.5 MILLIGRAM, BID
  17. LEVOFLOXACIN [Concomitant]
     Active Substance: LEVOFLOXACIN
     Indication: Urosepsis
     Dosage: UNK
  18. GENTAMICIN [Concomitant]
     Active Substance: GENTAMICIN
     Indication: Urosepsis
     Dosage: UNK

REACTIONS (6)
  - Delirium [Recovering/Resolving]
  - Cognitive disorder [Recovering/Resolving]
  - Pyroglutamic acidosis [Recovering/Resolving]
  - Acute kidney injury [Recovering/Resolving]
  - Urosepsis [Recovering/Resolving]
  - Kussmaul respiration [Recovering/Resolving]
